FAERS Safety Report 12982521 (Version 1)
Quarter: 2016Q4

REPORT INFORMATION
  Report Type: Spontaneous
  Country: KR (occurrence: KR)
  Receive Date: 20161129
  Receipt Date: 20161129
  Transmission Date: 20170207
  Serious: Yes (Hospitalization)
  Sender: FDA-Public Use
  Company Number: KR-OTSUKA-2016_027817

PATIENT
  Age: 68 Year
  Sex: Male

DRUGS (17)
  1. CARVEDILOL. [Suspect]
     Active Substance: CARVEDILOL
     Indication: HYPONATRAEMIA
     Dosage: UNK
     Route: 065
     Dates: start: 20130206, end: 20130224
  2. FUROSEMIDE. [Concomitant]
     Active Substance: FUROSEMIDE
     Dosage: 12.5 MG, QD
     Route: 065
     Dates: start: 20130206, end: 20130224
  3. DOBUTAMINE [Concomitant]
     Active Substance: DOBUTAMINE\DOBUTAMINE HYDROCHLORIDE
     Indication: PRODUCT USED FOR UNKNOWN INDICATION
     Dosage: 40 MG, QD
     Route: 065
     Dates: start: 20130206, end: 20130224
  4. SAMSCA [Suspect]
     Active Substance: TOLVAPTAN
     Dosage: 3.12 MG, QD
     Route: 065
     Dates: start: 20130206
  5. CHLORPHENAMINE [Concomitant]
     Active Substance: CHLORPHENIRAMINE MALEATE
     Indication: PRODUCT USED FOR UNKNOWN INDICATION
     Dosage: UNK
     Route: 065
     Dates: start: 20130225
  6. FUROSEMIDE. [Concomitant]
     Active Substance: FUROSEMIDE
     Dosage: UNK
     Route: 065
     Dates: start: 20130225
  7. SAMSCA [Suspect]
     Active Substance: TOLVAPTAN
     Dosage: 3.12 MG, QD
     Route: 065
  8. SAMSCA [Suspect]
     Active Substance: TOLVAPTAN
     Dosage: 6.25 MG, QD
     Route: 065
  9. CARVEDILOL. [Suspect]
     Active Substance: CARVEDILOL
     Dosage: UNK
     Route: 065
     Dates: start: 20130225
  10. FUROSEMIDE. [Concomitant]
     Active Substance: FUROSEMIDE
     Indication: PRODUCT USED FOR UNKNOWN INDICATION
     Dosage: 40 MG, QD
     Dates: start: 20130225
  11. FUROSEMIDE. [Concomitant]
     Active Substance: FUROSEMIDE
     Dosage: 25 ?G, QD
     Route: 065
     Dates: start: 20130126, end: 20130225
  12. SAMSCA [Suspect]
     Active Substance: TOLVAPTAN
     Indication: HYPONATRAEMIA
     Dosage: UNK
     Route: 065
     Dates: start: 20130128, end: 20130321
  13. SAMSCA [Suspect]
     Active Substance: TOLVAPTAN
     Dosage: 6.25 MG, QD
     Route: 065
     Dates: start: 20130206
  14. SAMSCA [Suspect]
     Active Substance: TOLVAPTAN
     Dosage: 2 MG, QD
     Route: 065
     Dates: start: 20130206
  15. SAMSCA [Suspect]
     Active Substance: TOLVAPTAN
     Indication: HYPOOSMOLAR STATE
     Dosage: UNK
     Route: 065
     Dates: start: 20130125, end: 20130125
  16. CARVEDILOL. [Suspect]
     Active Substance: CARVEDILOL
     Indication: HYPOOSMOLAR STATE
     Dosage: UNK
     Route: 065
     Dates: start: 20130126, end: 20130127
  17. HYDROCORTISONE. [Concomitant]
     Active Substance: HYDROCORTISONE
     Indication: PRODUCT USED FOR UNKNOWN INDICATION
     Dosage: UNK
     Route: 065
     Dates: start: 20121114

REACTIONS (2)
  - Hyperkalaemia [Recovered/Resolved]
  - Cardiac failure [Not Recovered/Not Resolved]

NARRATIVE: CASE EVENT DATE: 20130130
